FAERS Safety Report 7820808-X (Version None)
Quarter: 2011Q4

REPORT INFORMATION
  Report Type: 
  Country: None (occurrence: None)
  Receive Date: 20111013
  Receipt Date: 20111006
  Transmission Date: 20120403
  Serious: Yes (Death, Life-Threatening, Other)
  Sender: FDA-Public Use
  Company Number: 2011SP047590

PATIENT

DRUGS (1)
  1. TEMOZOLOMIDE [Suspect]
     Indication: GLIOBLASTOMA MULTIFORME
     Dosage: 75 MG/M2;QD PO
     Route: 048

REACTIONS (7)
  - LEUKOPENIA [None]
  - THROMBOCYTOPENIA [None]
  - BRONCHOPULMONARY ASPERGILLOSIS [None]
  - LEUKOENCEPHALOPATHY [None]
  - MENTAL IMPAIRMENT [None]
  - CEREBRAL ASPERGILLOSIS [None]
  - NEUTROPENIA [None]
